FAERS Safety Report 7009598-0 (Version None)
Quarter: 2010Q3

REPORT INFORMATION
  Report Type: 
  Country: None (occurrence: None)
  Receive Date: 20100923
  Receipt Date: 20100913
  Transmission Date: 20110219
  Serious: Yes (Other)
  Sender: FDA-Public Use
  Company Number: FR-PFIZER INC-2010115357

PATIENT
  Age: 58 Year
  Sex: Female

DRUGS (2)
  1. SALAZOPYRINE [Suspect]
     Dosage: UNK
  2. VOLTAREN [Concomitant]
     Dosage: UNK

REACTIONS (2)
  - FEBRILE NEUTROPENIA [None]
  - LEUKOPENIA [None]
